FAERS Safety Report 12843083 (Version 3)
Quarter: 2016Q4

REPORT INFORMATION
  Report Type: Report from Study
  Country: None (occurrence: CR)
  Receive Date: 20161013
  Receipt Date: 20161110
  Transmission Date: 20170207
  Serious: Yes (Death, Hospitalization, Other)
  Sender: FDA-Public Use
  Company Number: CR-ABBVIE-16K-039-1751420-00

PATIENT
  Age: 62 Year
  Sex: Female

DRUGS (1)
  1. HUMIRA [Suspect]
     Active Substance: ADALIMUMAB
     Indication: RHEUMATOID ARTHRITIS
     Route: 058
     Dates: start: 2008

REACTIONS (6)
  - Cardiac failure [Fatal]
  - Bacterial sepsis [Recovered/Resolved]
  - Vomiting [Recovered/Resolved]
  - Cholelithiasis [Recovered/Resolved]
  - Diarrhoea [Recovered/Resolved]
  - Disorientation [Recovered/Resolved]

NARRATIVE: CASE EVENT DATE: 20161003
